FAERS Safety Report 26061497 (Version 1)
Quarter: 2025Q4

REPORT INFORMATION
  Report Type: Spontaneous
  Country: US (occurrence: US)
  Receive Date: 20251118
  Receipt Date: 20251118
  Transmission Date: 20260117
  Serious: Yes (Other)
  Sender: NOVO NORDISK
  Company Number: US-NOVOPROD-1514085

PATIENT
  Age: 81 Year
  Sex: Male

DRUGS (1)
  1. INSULIN ASPART [Suspect]
     Active Substance: INSULIN ASPART
     Indication: Type 2 diabetes mellitus
     Dosage: 12 IU (3-4 TIMES DAILY)

REACTIONS (2)
  - Hypoglycaemic unconsciousness [Unknown]
  - Inappropriate schedule of product administration [Unknown]
